FAERS Safety Report 13278247 (Version 1)
Quarter: 2017Q1

REPORT INFORMATION
  Report Type: Spontaneous
  Country: US (occurrence: US)
  Receive Date: 20170228
  Receipt Date: 20170228
  Transmission Date: 20170428
  Serious: No
  Sender: FDA-Public Use
  Company Number: US-SHIRE-US201702369

PATIENT
  Age: 33 Year
  Sex: Male
  Weight: 56.54 kg

DRUGS (1)
  1. ELAPRASE [Suspect]
     Active Substance: IDURSULFASE
     Indication: MUCOPOLYSACCHARIDOSIS II
     Dosage: 30 MG, 1X/WEEK
     Route: 041
     Dates: start: 20140424

REACTIONS (4)
  - Nasal congestion [Unknown]
  - Headache [Unknown]
  - Paranasal sinus hypersecretion [Unknown]
  - Malaise [Unknown]

NARRATIVE: CASE EVENT DATE: 20170124
